FAERS Safety Report 14463740 (Version 2)
Quarter: 2018Q2

REPORT INFORMATION
  Report Type: Spontaneous
  Country: US (occurrence: US)
  Receive Date: 20180130
  Receipt Date: 20180426
  Transmission Date: 20180711
  Serious: No
  Sender: FDA-Public Use
  Company Number: US-009507513-1801USA001040

PATIENT

DRUGS (3)
  1. HYDROCORTISONE. [Suspect]
     Active Substance: HYDROCORTISONE
     Indication: EXTUBATION
  2. ACETAMINOPHEN (+) IBUPROFEN [Concomitant]
     Dosage: 10 MG/KG FIRST DOSE FOLLOWED BY TWO 5 MG/KG DOSES, GIVEN EVERY 12 HOURS.
     Route: 042
  3. INDOMETHACIN. [Concomitant]
     Active Substance: INDOMETHACIN
     Dosage: 2 MG/KG, Q24H, EVERY 24 HOURS FOR A TOTAL OF 3 DOSES
     Route: 042

REACTIONS (1)
  - Product use in unapproved indication [Unknown]
